FAERS Safety Report 24628571 (Version 2)
Quarter: 2024Q4

REPORT INFORMATION
  Report Type: Spontaneous
  Country: IT (occurrence: IT)
  Receive Date: 20241117
  Receipt Date: 20241204
  Transmission Date: 20250114
  Serious: Yes (Other)
  Sender: ORGANON
  Company Number: IT-ORGANON-O2411ITA000862

PATIENT
  Age: 28 Year
  Sex: Female

DRUGS (2)
  1. NUVARING [Suspect]
     Active Substance: ETHINYL ESTRADIOL\ETONOGESTREL
     Indication: Contraception
     Dosage: 1 RING (0.120 MG/0.015 MG EVERY 24 HOURS)
     Route: 067
     Dates: start: 202312
  2. NUVARING [Suspect]
     Active Substance: ETHINYL ESTRADIOL\ETONOGESTREL
     Dosage: 1 RING (0.120 MG/0.015 MG EVERY 24 HOURS)
     Route: 067
     Dates: end: 20241107

REACTIONS (2)
  - Cerebral venous thrombosis [Unknown]
  - Superior sagittal sinus thrombosis [Unknown]

NARRATIVE: CASE EVENT DATE: 20241107
